FAERS Safety Report 4736877-X (Version None)
Quarter: 2005Q3

REPORT INFORMATION
  Report Type: 
  Country: None (occurrence: None)
  Receive Date: 20050808
  Receipt Date: 20041203
  Transmission Date: 20060218
  Serious: Yes (Other)
  Sender: FDA-Public Use
  Company Number: GB-GLAXOSMITHKLINE-B0359801A

PATIENT
  Sex: Male

DRUGS (1)
  1. SEROXAT [Suspect]
     Dosage: 20MG PER DAY
     Route: 065
     Dates: start: 19960326, end: 20010901

REACTIONS (3)
  - AGGRESSION [None]
  - ILL-DEFINED DISORDER [None]
  - SUICIDAL IDEATION [None]
